FAERS Safety Report 4866139-1 (Version None)
Quarter: 2005Q4

REPORT INFORMATION
  Report Type: 
  Country: None (occurrence: None)
  Receive Date: 20051221
  Receipt Date: 20051206
  Transmission Date: 20060501
  Serious: Yes (Congenital Anomaly)
  Sender: FDA-Public Use
  Company Number: 33334

PATIENT
  Sex: Female

DRUGS (2)
  1. VEXOL [Suspect]
     Dosage: TRANSPLACENTAL
     Route: 064
  2. MAXIDEX [Suspect]

REACTIONS (2)
  - DRUG EXPOSURE DURING PREGNANCY [None]
  - SPINA BIFIDA [None]
